FAERS Safety Report 5847120 (Version 2)
Quarter: 2014Q4

REPORT INFORMATION
  Report Type: Spontaneous
  Country: US (occurrence: None)
  Receive Date: 20050215
  Receipt Date: 20141003
  Transmission Date: 20150529
  Serious: Yes (Hospitalization)
  Sender: FDA-Public Use
  Company Number: 389059

PATIENT
  Age: 71 Year
  Sex: Female

DRUGS (7)
  1. PREMARIN [Concomitant]
     Active Substance: ESTROGENS, CONJUGATED
  2. SYNTHROID [Concomitant]
     Active Substance: LEVOTHYROXINE SODIUM
  3. EPOETIN BETA [Concomitant]
     Active Substance: ERYTHROPOIETIN
  4. RIBAVIRIN. [Suspect]
     Active Substance: RIBAVIRIN
     Indication: HEPATITIS C
  5. FILGRASTIM (FILGRASTIM) [Concomitant]
     Active Substance: FILGRASTIM
  6. PEG-INTERFERON ALFA 2A [Suspect]
     Active Substance: PEGINTERFERON ALFA-2A
     Indication: HEPATITIS C
     Dosage: 180 MCG 1 PER WEEK
  7. AMILORIDE HYDROCHLORIDE (AMILORIDE HYDROCHLORIDE) [Concomitant]
     Active Substance: AMILORIDE HYDROCHLORIDE

REACTIONS (7)
  - Fatigue [None]
  - Pneumonitis [None]
  - Diarrhoea [None]
  - Adverse event [None]
  - Cough [None]
  - Dehydration [None]
  - Nausea [None]
